FAERS Safety Report 5745560-3 (Version None)
Quarter: 2008Q2

REPORT INFORMATION
  Report Type: 
  Country: None (occurrence: None)
  Receive Date: 20080521
  Receipt Date: 20080516
  Transmission Date: 20081010
  Serious: Yes (Life-Threatening, Other)
  Sender: FDA-Public Use
  Company Number: DE-PFIZER INC-2008017098

PATIENT
  Sex: Female
  Weight: 63 kg

DRUGS (2)
  1. CHANTIX [Suspect]
     Indication: NICOTINE DEPENDENCE
     Route: 048
     Dates: start: 20071001, end: 20071020
  2. CONTRACEPTIVE, UNSPECIFIED [Concomitant]

REACTIONS (6)
  - APATHY [None]
  - CRYING [None]
  - DEPRESSION [None]
  - EMOTIONAL DISORDER [None]
  - INDIFFERENCE [None]
  - SUICIDAL IDEATION [None]
